FAERS Safety Report 16541901 (Version 1)
Quarter: 2019Q3

REPORT INFORMATION
  Report Type: Spontaneous
  Country: US (occurrence: US)
  Receive Date: 20190708
  Receipt Date: 20190708
  Transmission Date: 20191004
  Serious: No
  Sender: FDA-Public Use
  Company Number: US-PFIZER INC-2019291834

PATIENT
  Age: 67 Year
  Sex: Female
  Weight: 80.74 kg

DRUGS (1)
  1. LYRICA [Suspect]
     Active Substance: PREGABALIN
     Indication: DIABETIC NEUROPATHY
     Dosage: 50 MG, 2X/DAY
     Route: 048
     Dates: start: 2009

REACTIONS (4)
  - Body height decreased [Unknown]
  - Erythema [Unknown]
  - Swelling [Unknown]
  - Weight increased [Unknown]
